FAERS Safety Report 8797267 (Version 2)
Quarter: 2012Q4

REPORT INFORMATION
  Report Type: 
  Country: AU (occurrence: AU)
  Receive Date: 20120920
  Receipt Date: 20120925
  Transmission Date: 20130627
  Serious: Yes (Other)
  Sender: FDA-Public Use
  Company Number: AU-JNJFOC-20120906878

PATIENT
  Age: 79 Year
  Sex: Female

DRUGS (2)
  1. TRAMADOL [Suspect]
     Indication: PRODUCT USED FOR UNKNOWN INDICATION
     Route: 065
  2. MIRTAZAPINE [Suspect]
     Indication: PRODUCT USED FOR UNKNOWN INDICATION
     Route: 065

REACTIONS (1)
  - Toxicity to various agents [Unknown]
